APPROVED DRUG PRODUCT: CLADRIBINE
Active Ingredient: CLADRIBINE
Strength: 1MG/ML
Dosage Form/Route: INJECTABLE;INJECTION
Application: A076571 | Product #001 | TE Code: AP
Applicant: FRESENIUS KABI USA LLC
Approved: Apr 22, 2004 | RLD: No | RS: Yes | Type: RX